FAERS Safety Report 25671490 (Version 2)
Quarter: 2025Q4

REPORT INFORMATION
  Report Type: Spontaneous
  Country: EU (occurrence: EU)
  Receive Date: 20250812
  Receipt Date: 20251015
  Transmission Date: 20260118
  Serious: Yes (Hospitalization, Other)
  Sender: NOVARTIS
  Company Number: None

PATIENT
  Age: 21 Year
  Sex: Female
  Weight: 38 kg

DRUGS (6)
  1. TEGRETOL [Suspect]
     Active Substance: CARBAMAZEPINE
     Indication: Epileptic encephalopathy
     Dosage: 1 COMPRESSA DA 400 MG AL MATTINO, 1 COMPRESSA 400 MG A RILASCIO MODIFICATO ALLA SERA, 1 COMPRESSA DA
     Route: 048
  2. KEPPRA [Interacting]
     Active Substance: LEVETIRACETAM
     Indication: Epileptic encephalopathy
     Dosage: 1500 MG (1 COMPRESSA E MEZZA) AL MATTINO E 1500 MG ALLA SERA.
     Route: 048
  3. CENOBAMATE [Suspect]
     Active Substance: CENOBAMATE
     Indication: Epileptic encephalopathy
     Dosage: 75 MG/DIE
     Route: 048
     Dates: start: 202405, end: 202407
  4. RIVOTRIL [Concomitant]
     Active Substance: CLONAZEPAM
     Indication: Product used for unknown indication
     Dosage: RIVOTRIL 2,5 MG/ML. 10 GOCCE AL MATTINO, 10 GOCCE A MET? GIORNATA, 10 GOCCE ALLA SERA.
     Route: 048
  5. PHENOBARBITAL [Concomitant]
     Active Substance: PHENOBARBITAL
     Indication: Epileptic encephalopathy
     Dosage: 25 MG AL MATTINO (MEZZA COMPRESSA), 1 COMPRESSA DA 50 MG ALLA SERA.
     Route: 048
  6. CANNABIDIOL [Concomitant]
     Active Substance: CANNABIDIOL
     Indication: Epileptic encephalopathy
     Dosage: SOLUZIONE 10 G 100 ML. 3 ML A MET? GIORNATA, 3 ML ALLA SERA.
     Route: 048

REACTIONS (4)
  - Vomiting [Not Recovered/Not Resolved]
  - Gastrooesophageal reflux disease [Recovering/Resolving]
  - Oesophagitis [Recovering/Resolving]
  - Drug interaction [Recovering/Resolving]

NARRATIVE: CASE EVENT DATE: 20240701
